FAERS Safety Report 5530600-7 (Version None)
Quarter: 2007Q4

REPORT INFORMATION
  Report Type: 
  Country: None (occurrence: None)
  Receive Date: 20071127
  Receipt Date: 20071127
  Transmission Date: 20080405
  Serious: Yes (Hospitalization)
  Sender: FDA-Public Use
  Company Number: None

PATIENT
  Age: 24 Year
  Sex: Female

DRUGS (1)
  1. MERCAPTOPURINE [Suspect]
     Dosage: 100MG PO DAILY PTA
     Route: 048

REACTIONS (2)
  - COLITIS ULCERATIVE [None]
  - PNEUMONIA [None]
